FAERS Safety Report 4862892-1 (Version None)
Quarter: 2005Q4

REPORT INFORMATION
  Report Type: 
  Country: None (occurrence: None)
  Receive Date: 20051129
  Receipt Date: 20050819
  Transmission Date: 20060501
  Serious: No
  Sender: FDA-Public Use
  Company Number: WAES 0508USA03408

PATIENT
  Sex: 0

DRUGS (2)
  1. ZETIA [Suspect]
     Dosage: 10 MG/DAILY/PO
     Route: 048
  2. COUMADIN [Concomitant]

REACTIONS (1)
  - PROTHROMBIN TIME ABNORMAL [None]
